FAERS Safety Report 5499852-6 (Version None)
Quarter: 2007Q4

REPORT INFORMATION
  Report Type: 
  Country: None (occurrence: None)
  Receive Date: 20071026
  Receipt Date: 20071019
  Transmission Date: 20080405
  Serious: Yes (Other)
  Sender: FDA-Public Use
  Company Number: GB-PFIZER INC-2007083521

PATIENT
  Age: 57 Year
  Sex: Female

DRUGS (5)
  1. DIFLUCAN [Suspect]
     Indication: PROPHYLAXIS
     Dosage: DAILY DOSE:100MG
     Route: 048
  2. TAXOTERE [Suspect]
     Indication: BREAST CANCER METASTATIC
     Dosage: DAILY DOSE:75MG/M2
     Route: 042
  3. XELODA [Suspect]
     Indication: BREAST CANCER METASTATIC
     Dosage: DAILY DOSE:2500MG
  4. LASIX [Concomitant]
     Indication: HYPERTENSION
     Dosage: DAILY DOSE:40MG
  5. NEUPOGEN [Concomitant]
     Indication: ARTHRITIS
     Dosage: DAILY DOSE:480MCG
     Route: 058

REACTIONS (21)
  - ABDOMINAL PAIN [None]
  - DIARRHOEA [None]
  - DROOLING [None]
  - DRUG INEFFECTIVE [None]
  - FATIGUE [None]
  - FUNGAL INFECTION [None]
  - HYPOAESTHESIA [None]
  - HYPOTENSION [None]
  - LACRIMATION INCREASED [None]
  - NAUSEA [None]
  - ONYCHOLYSIS [None]
  - PAIN [None]
  - PALMAR-PLANTAR ERYTHRODYSAESTHESIA SYNDROME [None]
  - PYREXIA [None]
  - RASH [None]
  - RHINITIS [None]
  - SKIN EXFOLIATION [None]
  - TONGUE COATED [None]
  - VOMITING [None]
  - VULVOVAGINAL MYCOTIC INFECTION [None]
  - WHITE BLOOD CELL COUNT DECREASED [None]
